FAERS Safety Report 8552425-0 (Version None)
Quarter: 2012Q3

REPORT INFORMATION
  Report Type: 
  Country: None (occurrence: None)
  Receive Date: 20120718
  Receipt Date: 20120706
  Transmission Date: 20120928
  Serious: Yes (Hospitalization)
  Sender: FDA-Public Use
  Company Number: INT_00083_2012

PATIENT
  Age: 61 Year
  Sex: Female

DRUGS (1)
  1. MEROPENEM [Suspect]
     Indication: FEBRILE NEUTROPENIA
     Dosage: DF
     Dates: start: 20090101

REACTIONS (2)
  - DRUG ERUPTION [None]
  - PLASMACYTOSIS [None]
